FAERS Safety Report 5045829-4 (Version None)
Quarter: 2006Q2

REPORT INFORMATION
  Report Type: 
  Country: None (occurrence: None)
  Receive Date: 20060629
  Receipt Date: 20060616
  Transmission Date: 20061013
  Serious: Yes (Other)
  Sender: FDA-Public Use
  Company Number: 2006080296

PATIENT
  Age: 50 Year
  Sex: Male

DRUGS (1)
  1. BEXTRA [Suspect]
     Dates: start: 20030701

REACTIONS (2)
  - CARDIAC ARREST [None]
  - MYOCARDIAL INFARCTION [None]
